FAERS Safety Report 17477613 (Version 1)
Quarter: 2020Q1

REPORT INFORMATION
  Report Type: Spontaneous
  Country: GB (occurrence: GB)
  Receive Date: 20200228
  Receipt Date: 20200228
  Transmission Date: 20200409
  Serious: Yes (Hospitalization)
  Sender: FDA-Public Use
  Company Number: GB-MYLANLABS-2020M1021401

PATIENT
  Age: 82 Year
  Sex: Male

DRUGS (14)
  1. QUININE BISULFATE [Concomitant]
     Active Substance: QUININE BISULFATE
     Dosage: 300 MILLIGRAM, QD (AT NIGHT)
     Route: 048
  2. SALIVA [Concomitant]
     Dosage: UNK UNK, PRN (AS NECESSARY)
     Route: 060
  3. NINTEDANIB [Concomitant]
     Active Substance: NINTEDANIB
     Dosage: 300 MILLIGRAM, QD
     Route: 048
  4. LOSARTAN. [Suspect]
     Active Substance: LOSARTAN
     Indication: PRODUCT USED FOR UNKNOWN INDICATION
     Dosage: 12.5 MILLIGRAM, QD
     Route: 048
     Dates: end: 20191115
  5. GLYCERYL TRINITRATE [Concomitant]
     Active Substance: NITROGLYCERIN
     Dosage: 400 MICROGRAM, PRN (UP TO 1-2 SPRAYS) (AS NECESSARY)
     Route: 060
  6. DOCUSATE [Concomitant]
     Active Substance: DOCUSATE
     Dosage: 100 MILLIGRAM, PRN (TWICE A DAY) (AS NECESSARY)
     Route: 048
  7. BISOPROLOL [Suspect]
     Active Substance: BISOPROLOL
     Indication: PRODUCT USED FOR UNKNOWN INDICATION
     Dosage: 1.25 MILLIGRAM, QD
     Route: 048
     Dates: end: 20191115
  8. FUROSEMIDE. [Suspect]
     Active Substance: FUROSEMIDE
     Indication: PRODUCT USED FOR UNKNOWN INDICATION
     Dosage: 40 MILLIGRAM, QD
     Route: 048
     Dates: end: 20191115
  9. BUPRENORPHINE. [Concomitant]
     Active Substance: BUPRENORPHINE
     Dosage: 1 DOSAGE FORM, QW (10MICROGRAMS/HOUR)
     Route: 062
  10. CASSIA ACUTIFOLIA [Concomitant]
     Dosage: 7.5 MILLIGRAM, PRN (1-2 ONCE A NIGHT) (AS NECESSARY)
     Route: 048
  11. OMEPRAZOLE. [Concomitant]
     Active Substance: OMEPRAZOLE
     Dosage: 20 MILLIGRAM, QD
     Route: 048
  12. SALBUTAMOL [Concomitant]
     Active Substance: ALBUTEROL
     Dosage: UNK UNK, PRN (2.5MG/2.5ML 1-2 PUFFS)
     Route: 055
  13. ATORVASTATIN [Concomitant]
     Active Substance: ATORVASTATIN
     Dosage: 40 MILLIGRAM, QD (AT NIGHT)
     Route: 048
  14. MORPHINE [Concomitant]
     Active Substance: MORPHINE
     Dosage: PRN (10MG/5ML FOUR TIMES DAILY) (AS NECESSARY)
     Route: 048

REACTIONS (2)
  - Orthostatic hypotension [Recovered/Resolved]
  - Dizziness [Recovered/Resolved]

NARRATIVE: CASE EVENT DATE: 20191115
